FAERS Safety Report 7033837-3 (Version None)
Quarter: 2010Q4

REPORT INFORMATION
  Report Type: 
  Country: None (occurrence: None)
  Receive Date: 20101007
  Receipt Date: 20100930
  Transmission Date: 20110411
  Serious: Yes (Death)
  Sender: FDA-Public Use
  Company Number: PHHY2010CA43883

PATIENT
  Sex: Male

DRUGS (10)
  1. AFINITOR [Suspect]
     Indication: METASTATIC RENAL CELL CARCINOMA
     Dosage: 10 MG DAILY
     Route: 048
     Dates: start: 20090101, end: 20100406
  2. CRESTON [Concomitant]
     Dosage: 40 MG, QD
  3. METOPROLOL TARTRATE [Concomitant]
     Dosage: 100 MG, BID
  4. HYDRALAZINE HCL [Concomitant]
     Dosage: 10 MG, BID
  5. COUMADIN [Concomitant]
     Dosage: 5 MG, QD
  6. VITAMIN D [Concomitant]
     Dosage: UNK
  7. CALCIUM [Concomitant]
     Dosage: 500 MG, QD
  8. PANTOLOC [Concomitant]
     Dosage: 40 MG, QD
  9. LASIX [Concomitant]
     Dosage: 40 MG, QD
  10. DEXAMETHASONE [Concomitant]
     Dosage: 0.75 MG, QD

REACTIONS (1)
  - DEATH [None]
